FAERS Safety Report 24011115 (Version 1)
Quarter: 2024Q2

REPORT INFORMATION
  Report Type: Report from Study
  Country: US (occurrence: US)
  Receive Date: 20240625
  Receipt Date: 20240625
  Transmission Date: 20240715
  Serious: Yes (Hospitalization, Other)
  Sender: FDA-Public Use
  Company Number: US-JAZZ PHARMACEUTICALS-2024-US-009556

PATIENT
  Sex: Female

DRUGS (1)
  1. EPIDIOLEX [Suspect]
     Active Substance: CANNABIDIOL
     Indication: Lennox-Gastaut syndrome
     Dosage: 4 MILLILITER, BID (G-TUBE)
     Dates: start: 202405

REACTIONS (7)
  - Aspiration [Unknown]
  - Vomiting [Unknown]
  - Respiratory disorder [Unknown]
  - CSF shunt operation [Unknown]
  - Abnormal behaviour [Unknown]
  - Lethargy [Unknown]
  - Paralysis [Unknown]
